FAERS Safety Report 16386285 (Version 1)
Quarter: 2019Q2

REPORT INFORMATION
  Report Type: Report from Study
  Country: None (occurrence: AT)
  Receive Date: 20190603
  Receipt Date: 20190603
  Transmission Date: 20190711
  Serious: Yes (Hospitalization)
  Sender: FDA-Public Use
  Company Number: AT-ABBVIE-19S-009-2805910-00

PATIENT
  Sex: Female

DRUGS (1)
  1. DUODOPA [Suspect]
     Active Substance: CARBIDOPA\LEVODOPA
     Indication: PARKINSON^S DISEASE
     Dosage: 24H THERAPY MD: 5ML, CR DT 1: 1.3ML/H, CR DT 2: 2.4 ML/H, CR NT 2.7ML/H ED2,5 ML
     Route: 050

REACTIONS (2)
  - On and off phenomenon [Recovering/Resolving]
  - Device dislocation [Recovering/Resolving]
